FAERS Safety Report 8199274-3 (Version None)
Quarter: 2012Q1

REPORT INFORMATION
  Report Type: 
  Country: None (occurrence: None)
  Receive Date: 20120309
  Receipt Date: 20120305
  Transmission Date: 20120608
  Serious: Yes (Hospitalization)
  Sender: FDA-Public Use
  Company Number: US-PFIZER INC-2012058743

PATIENT
  Sex: Female
  Weight: 65.76 kg

DRUGS (4)
  1. SERTRALINE [Concomitant]
     Dosage: 100 MG, 2X/DAY
  2. ALPRAZOLAM [Concomitant]
     Indication: SLEEP DISORDER
     Dosage: 2 MG, UNK
  3. GEODON [Suspect]
     Dosage: 60 MG, 2X/DAY
     Route: 048
     Dates: start: 20010101
  4. GEODON [Suspect]
     Indication: DELUSION
     Dosage: 80 MG, 2X/DAY
     Route: 048
     Dates: start: 20010101, end: 20010101

REACTIONS (6)
  - SOMNOLENCE [None]
  - MALAISE [None]
  - SOCIAL AVOIDANT BEHAVIOUR [None]
  - ACCIDENT [None]
  - HYPERSOMNIA [None]
  - DRUG INTOLERANCE [None]
